FAERS Safety Report 8888399 (Version 1)
Quarter: 2012Q4

REPORT INFORMATION
  Report Type: 
  Country: US (occurrence: US)
  Receive Date: 20121106
  Receipt Date: 20121106
  Transmission Date: 20130627
  Serious: No
  Sender: FDA-Public Use
  Company Number: US-B.I. PHARMACEUTICALS,INC./RIDGEFIELD-2012-BP-27038BP

PATIENT
  Age: 86 None
  Sex: Female
  Weight: 52 kg

DRUGS (4)
  1. SPIRIVA [Suspect]
     Indication: EMPHYSEMA
     Dosage: 18 mcg
     Route: 055
     Dates: start: 201208
  2. TYLENOL EXTRA STRENGTH [Concomitant]
     Indication: HEADACHE
     Route: 048
  3. COUMADIN [Concomitant]
     Indication: CEREBROVASCULAR ACCIDENT PROPHYLAXIS
     Dosage: 5 mg
     Route: 048
     Dates: start: 1985
  4. DIGOXIN [Concomitant]
     Indication: PALPITATIONS
     Dosage: 0.125 mcg
     Route: 048
     Dates: start: 1985

REACTIONS (3)
  - Throat irritation [Not Recovered/Not Resolved]
  - Product quality issue [Recovered/Resolved]
  - Product quality issue [Recovered/Resolved]
